FAERS Safety Report 7241851-8 (Version None)
Quarter: 2011Q1

REPORT INFORMATION
  Report Type: 
  Country: None (occurrence: None)
  Receive Date: 20110124
  Receipt Date: 20110118
  Transmission Date: 20110831
  Serious: Yes (Other)
  Sender: FDA-Public Use
  Company Number: US-BRISTOL-MYERS SQUIBB COMPANY-14815773

PATIENT
  Age: 1 Day
  Sex: Male
  Weight: 1 kg

DRUGS (4)
  1. TRUVADA [Suspect]
     Dosage: NO OF COURSE:1
     Route: 064
  2. RETROVIR [Suspect]
     Dosage: ALSO TOOK 1MG/KG/HR:COURSE:2 2MG/KG/HR:COURSE:1
     Route: 064
     Dates: start: 20091202, end: 20091202
  3. NORVIR [Suspect]
     Dosage: NO OF COURSE:1
     Route: 064
  4. REYATAZ [Suspect]
     Dosage: NO OF COURSE:1
     Route: 064

REACTIONS (1)
  - PREMATURE BABY [None]
